FAERS Safety Report 8556736-4 (Version None)
Quarter: 2012Q3

REPORT INFORMATION
  Report Type: 
  Country: None (occurrence: None)
  Receive Date: 20120719
  Receipt Date: 20110930
  Transmission Date: 20120928
  Serious: Yes (Other)
  Sender: FDA-Public Use
  Company Number: 2011AP002289

PATIENT
  Age: 26 Year
  Sex: Female

DRUGS (1)
  1. TERBINAFINE HCL [Suspect]
     Dosage: 250 MG; PO
     Route: 048

REACTIONS (2)
  - MALAISE [None]
  - ALCOHOL INTERACTION [None]
